FAERS Safety Report 7937087-5 (Version None)
Quarter: 2011Q4

REPORT INFORMATION
  Report Type: 
  Country: None (occurrence: None)
  Receive Date: 20111123
  Receipt Date: 20111117
  Transmission Date: 20120403
  Serious: Yes (Hospitalization, Other)
  Sender: FDA-Public Use
  Company Number: US-SHIRE-ALL1-2011-04547

PATIENT
  Sex: Female
  Weight: 21.769 kg

DRUGS (3)
  1. INTUNIV [Suspect]
     Dosage: 1 MG, 1X/DAY:QD
     Route: 048
     Dates: start: 20110501, end: 20110501
  2. INTUNIV [Suspect]
     Indication: ATTENTION DEFICIT/HYPERACTIVITY DISORDER
     Dosage: 2 MG, 1X/DAY:QD
     Route: 048
     Dates: start: 20110501, end: 20111115
  3. FOCALIN [Suspect]
     Indication: ATTENTION DEFICIT/HYPERACTIVITY DISORDER
     Dosage: 10 MG, 1X/DAY:QD
     Route: 048
     Dates: start: 20110501, end: 20111115

REACTIONS (4)
  - VIITH NERVE PARALYSIS [None]
  - CONVULSION [None]
  - DYSARTHRIA [None]
  - WITHDRAWAL SYNDROME [None]
